FAERS Safety Report 5476873-0 (Version None)
Quarter: 2007Q4

REPORT INFORMATION
  Report Type: 
  Country: None (occurrence: None)
  Receive Date: 20071004
  Receipt Date: 20071001
  Transmission Date: 20080405
  Serious: Yes (Life-Threatening, Hospitalization)
  Sender: FDA-Public Use
  Company Number: PHBS2007ES16188

PATIENT
  Age: 50 Year
  Sex: Female

DRUGS (7)
  1. TOFRANIL [Suspect]
     Indication: MAJOR DEPRESSION
     Dosage: 150 MG/DAY
     Route: 048
     Dates: start: 20060101, end: 20070608
  2. VENLAFAXINE HCL [Suspect]
     Indication: MAJOR DEPRESSION
     Dosage: 150 MG/DAY
     Route: 048
     Dates: start: 20070217, end: 20070608
  3. TRANKIMAZIN [Concomitant]
     Indication: MAJOR DEPRESSION
     Dosage: 3 MG/DAY
     Dates: start: 20060101, end: 20070608
  4. CINITAPRIDE [Concomitant]
     Indication: MAJOR DEPRESSION
     Dosage: 3 MG, TID
     Route: 048
     Dates: start: 20060101, end: 20070608
  5. ZYPREXA [Concomitant]
     Indication: MAJOR DEPRESSION
     Dosage: 5 MG, QD
     Route: 048
     Dates: start: 20060101, end: 20070608
  6. RABEPRAZOLE SODIUM [Concomitant]
     Route: 048
  7. ANAFRANIL [Suspect]
     Indication: MAJOR DEPRESSION
     Dosage: 150 MG/DAY
     Route: 048
     Dates: start: 20060115, end: 20070608

REACTIONS (5)
  - BLOOD CREATINE PHOSPHOKINASE INCREASED [None]
  - DRUG INTERACTION [None]
  - HAEMODIALYSIS [None]
  - RHABDOMYOLYSIS [None]
  - SEROTONIN SYNDROME [None]
